FAERS Safety Report 13557779 (Version 1)
Quarter: 2017Q2

REPORT INFORMATION
  Report Type: Spontaneous
  Country: US (occurrence: US)
  Receive Date: 20170518
  Receipt Date: 20170518
  Transmission Date: 20170830
  Serious: No
  Sender: FDA-Public Use
  Company Number: US-VERTEX PHARMACEUTICALS-2017-002600

PATIENT
  Age: 18 Year
  Sex: Female

DRUGS (23)
  1. ORKAMBI [Suspect]
     Active Substance: IVACAFTOR\LUMACAFTOR
     Indication: CYSTIC FIBROSIS
     Dosage: UNK, BID
     Route: 048
     Dates: start: 20161214
  2. ZITHROMAX [Concomitant]
     Active Substance: AZITHROMYCIN DIHYDRATE
  3. AQUADEKS [Concomitant]
     Active Substance: MINERALS\VITAMINS
  4. SINGULAIR [Concomitant]
     Active Substance: MONTELUKAST SODIUM
  5. VITAMIN E [Concomitant]
     Active Substance: .ALPHA.-TOCOPHEROL
  6. TRIPLE OMEGA [Concomitant]
  7. MIRALAX [Concomitant]
     Active Substance: POLYETHYLENE GLYCOL 3350
  8. VITAMIN D3 [Concomitant]
     Active Substance: CHOLECALCIFEROL
  9. CREON [Concomitant]
     Active Substance: PANCRELIPASE AMYLASE\PANCRELIPASE LIPASE\PANCRELIPASE PROTEASE
  10. VENTOLINE [Concomitant]
     Active Substance: ALBUTEROL
  11. PULMOSAL [Concomitant]
  12. ACIDOPHILUS [Concomitant]
     Active Substance: LACTOBACILLUS ACIDOPHILUS
  13. QVAR [Concomitant]
     Active Substance: BECLOMETHASONE DIPROPIONATE
  14. CAYSTON [Concomitant]
     Active Substance: AZTREONAM
  15. PULMOZYME [Concomitant]
     Active Substance: DORNASE ALFA
  16. FLONASE [Concomitant]
     Active Substance: FLUTICASONE PROPIONATE
  17. TAURINE [Concomitant]
     Active Substance: TAURINE
  18. PANTOPRAZOLE [Concomitant]
     Active Substance: PANTOPRAZOLE
  19. TUMS [Concomitant]
     Active Substance: CALCIUM CARBONATE
  20. FISH OIL [Concomitant]
     Active Substance: FISH OIL
  21. URSODIOL. [Concomitant]
     Active Substance: URSODIOL
  22. OMEPRAZOLE. [Concomitant]
     Active Substance: OMEPRAZOLE
  23. TOBRAMYCIN. [Concomitant]
     Active Substance: TOBRAMYCIN

REACTIONS (2)
  - Abdominal discomfort [Unknown]
  - Viral upper respiratory tract infection [Unknown]

NARRATIVE: CASE EVENT DATE: 201703
